FAERS Safety Report 8390727-1 (Version None)
Quarter: 2012Q2

REPORT INFORMATION
  Report Type: 
  Country: None (occurrence: None)
  Receive Date: 20120529
  Receipt Date: 20120522
  Transmission Date: 20120825
  Serious: Yes (Hospitalization, Other)
  Sender: FDA-Public Use
  Company Number: US-JNJFOC-20120504508

PATIENT
  Sex: Female
  Weight: 74.84 kg

DRUGS (4)
  1. ANESTHESIA [Concomitant]
     Indication: SURGERY
     Route: 065
     Dates: start: 20120327
  2. NORCO [Suspect]
     Indication: PAIN
     Dosage: 10/325 MG
     Route: 048
     Dates: start: 20120327, end: 20120327
  3. LYRICA [Concomitant]
     Indication: NEURALGIA
     Route: 065
     Dates: start: 20120327
  4. NUCYNTA ER [Suspect]
     Indication: PAIN
     Dosage: 150MG ONCE
     Route: 048
     Dates: start: 20120327, end: 20120327

REACTIONS (3)
  - DEPRESSED LEVEL OF CONSCIOUSNESS [None]
  - BLOOD PRESSURE DECREASED [None]
  - RESPIRATORY RATE DECREASED [None]
